FAERS Safety Report 11218518 (Version 1)
Quarter: 2015Q2

REPORT INFORMATION
  Report Type: Spontaneous
  Country: US (occurrence: None)
  Receive Date: 20150624
  Receipt Date: 20150624
  Transmission Date: 20150821
  Serious: No
  Sender: FDA-Public Use
  Company Number: None

PATIENT
  Age: 52 Year
  Sex: Female
  Weight: 55.79 kg

DRUGS (1)
  1. HUMIRA [Suspect]
     Active Substance: ADALIMUMAB
     Dosage: STRENGTH: 40  DOSE FORM: INJECTABLE ?FREQUENCY: 160MG THEN 80MG DAY 15 THEN 40MG ...?
     Route: 058
     Dates: start: 20150601

REACTIONS (2)
  - Constipation [None]
  - Eye swelling [None]

NARRATIVE: CASE EVENT DATE: 20150601
